FAERS Safety Report 8799359 (Version 4)
Quarter: 2012Q4

REPORT INFORMATION
  Report Type: 
  Country: US (occurrence: US)
  Receive Date: 20120919
  Receipt Date: 20121128
  Transmission Date: 20130627
  Serious: Yes (Other)
  Sender: FDA-Public Use
  Company Number: US-ASTELLAS-2012US007742

PATIENT
  Age: 50 None
  Sex: Female
  Weight: 54 kg

DRUGS (8)
  1. PROGRAF [Suspect]
     Indication: PANCREAS TRANSPLANT
     Dosage: 2 mg am, 1 mg pm
     Route: 048
     Dates: start: 20020228, end: 201206
  2. PROGRAF [Suspect]
     Indication: RENAL TRANSPLANT
     Dosage: 3 mg am, 2 mg pm
     Route: 048
     Dates: start: 201209
  3. MEDROL                             /00049601/ [Concomitant]
     Indication: RENAL TRANSPLANT
     Dosage: 4 mg, UID/QD
     Route: 048
  4. MEDROL                             /00049601/ [Concomitant]
     Indication: PANCREAS TRANSPLANT
  5. RAPAMUNE [Concomitant]
     Indication: RENAL TRANSPLANT
     Dosage: 3 mg, UID/QD
     Route: 048
  6. RAPAMUNE [Concomitant]
     Indication: PANCREAS TRANSPLANT
     Dosage: 4 mg, UID/QD
     Route: 048
  7. ASPIRIN [Concomitant]
     Indication: PRODUCT USED FOR UNKNOWN INDICATION
     Dosage: 81 mg, UID/QD
     Route: 048
  8. LASIX                              /00032601/ [Concomitant]
     Indication: PRODUCT USED FOR UNKNOWN INDICATION
     Dosage: 40 mg, UID/QD
     Route: 048

REACTIONS (12)
  - Off label use [Unknown]
  - Treatment noncompliance [Unknown]
  - Renal transplant [Unknown]
  - Transplant failure [Unknown]
  - Hysterectomy [Unknown]
  - Transplant rejection [Recovered/Resolved]
  - Osteomyelitis [Unknown]
  - Haemoglobin abnormal [Unknown]
  - Oedema [Recovered/Resolved]
  - Hyperlipidaemia [Unknown]
  - Urinary tract infection [Unknown]
  - Eye swelling [Recovered/Resolved]
